FAERS Safety Report 13295927 (Version 1)
Quarter: 2017Q1

REPORT INFORMATION
  Report Type: Other
  Country: GB (occurrence: US)
  Receive Date: 20170303
  Receipt Date: 20170303
  Transmission Date: 20170428
  Serious: Yes (Other)
  Sender: FDA-Public Use
  Company Number: US-INTERNATIONAL MEDICATION SYSTEMS, LIMITED-1063827

PATIENT
  Age: 22 Month
  Sex: Female

DRUGS (1)
  1. LIDOCAINE INJECTION [Suspect]
     Active Substance: LIDOCAINE

REACTIONS (1)
  - Embolia cutis medicamentosa [Recovering/Resolving]
